FAERS Safety Report 14748233 (Version 2)
Quarter: 2018Q2

REPORT INFORMATION
  Report Type: Report from Study
  Country: FR (occurrence: FR)
  Receive Date: 20180411
  Receipt Date: 20180508
  Transmission Date: 20180711
  Serious: Yes (Hospitalization)
  Sender: FDA-Public Use
  Company Number: FR-TERSERA THERAPEUTICS, LLC-2045603

PATIENT
  Age: 48 Year
  Sex: Female
  Weight: 120 kg

DRUGS (5)
  1. ZOLADEX [Suspect]
     Active Substance: GOSERELIN ACETATE
     Indication: BREAST CANCER METASTATIC
     Route: 058
     Dates: start: 20180224, end: 20180224
  2. PALBOCICLIB [Suspect]
     Active Substance: PALBOCICLIB
     Route: 048
     Dates: start: 20180305
  3. TRAMADOL. [Concomitant]
     Active Substance: TRAMADOL
     Dates: start: 20180112
  4. FEMARA [Suspect]
     Active Substance: LETROZOLE
     Route: 048
     Dates: start: 20180305
  5. PARACETAMOL [Concomitant]
     Active Substance: ACETAMINOPHEN
     Dates: start: 2018

REACTIONS (3)
  - Chest discomfort [Recovered/Resolved]
  - Hyperthermia [Recovered/Resolved]
  - Cough [Recovered/Resolved]

NARRATIVE: CASE EVENT DATE: 20180316
